FAERS Safety Report 9707730 (Version 8)
Quarter: 2014Q3

REPORT INFORMATION
  Report Type: Report from Study
  Country: US (occurrence: US)
  Receive Date: 20131125
  Receipt Date: 20140915
  Transmission Date: 20150326
  Serious: Yes (Hospitalization, Other)
  Sender: FDA-Public Use
  Company Number: US-ALEXION-A201303261

PATIENT

DRUGS (2)
  1. SOLIRIS [Suspect]
     Active Substance: ECULIZUMAB
     Dosage: 1200 MG, Q10DAYS
     Route: 042
     Dates: start: 20140304
  2. SOLIRIS [Suspect]
     Active Substance: ECULIZUMAB
     Indication: HAEMOLYTIC URAEMIC SYNDROME
     Dosage: 1200 MG, Q2W
     Route: 042
     Dates: start: 20131014, end: 20140304

REACTIONS (10)
  - Skin discolouration [Unknown]
  - Glassy eyes [Unknown]
  - Platelet count decreased [Not Recovered/Not Resolved]
  - Fatigue [Unknown]
  - Arteriovenous graft site infection [Recovered/Resolved]
  - Inappropriate schedule of drug administration [Unknown]
  - Pseudomonas infection [Recovered/Resolved]
  - Haemoglobin decreased [Unknown]
  - Haemorrhage [Unknown]
  - Nodule [Unknown]

NARRATIVE: CASE EVENT DATE: 20131202
